FAERS Safety Report 13942988 (Version 1)
Quarter: 2017Q3

REPORT INFORMATION
  Report Type: Spontaneous
  Country: RU (occurrence: RU)
  Receive Date: 20170906
  Receipt Date: 20170906
  Transmission Date: 20171128
  Serious: Yes (Death, Other)
  Sender: FDA-Public Use
  Company Number: RU-ELI_LILLY_AND_COMPANY-RU201709001076

PATIENT
  Age: 25 Year
  Sex: Female

DRUGS (3)
  1. ERBITUX [Suspect]
     Active Substance: CETUXIMAB
     Dosage: 250 MG/M2, WEEKLY (1/W)
     Route: 065
  2. ERBITUX [Suspect]
     Active Substance: CETUXIMAB
     Indication: LARYNGEAL CANCER METASTATIC
     Dosage: 400 MG/M2, UNKNOWN
     Route: 065
     Dates: start: 20100311
  3. CARBOPLATIN. [Concomitant]
     Active Substance: CARBOPLATIN
     Indication: LARYNGEAL CANCER METASTATIC
     Dosage: AUC 1.5
     Dates: start: 20100311

REACTIONS (5)
  - Tumour haemorrhage [Fatal]
  - Dysphonia [Unknown]
  - Metastasis [Unknown]
  - Lymphadenopathy [Unknown]
  - Gastrostomy tube site complication [Unknown]

NARRATIVE: CASE EVENT DATE: 201010
